FAERS Safety Report 24333194 (Version 2)
Quarter: 2024Q4

REPORT INFORMATION
  Report Type: Report from Study
  Country: US (occurrence: US)
  Receive Date: 20240918
  Receipt Date: 20241014
  Transmission Date: 20250115
  Serious: Yes (Hospitalization)
  Sender: JOHNSON AND JOHNSON
  Company Number: US-JNJFOC-20240943404

PATIENT
  Age: 4 Decade
  Sex: Female

DRUGS (10)
  1. SPRAVATO [Suspect]
     Active Substance: ESKETAMINE
     Indication: Depression
     Dosage: 84 MG, 1 TOTAL DOSES
     Dates: start: 20211130, end: 20211130
  2. SPRAVATO [Suspect]
     Active Substance: ESKETAMINE
     Dosage: 56 MG, 14 TOTAL DOSES
     Dates: start: 20211204, end: 20220409
  3. SPRAVATO [Suspect]
     Active Substance: ESKETAMINE
     Dosage: 84 MG, 1 TOTAL DOSES
     Dates: start: 20220507, end: 20220507
  4. SPRAVATO [Suspect]
     Active Substance: ESKETAMINE
     Dosage: 56 MG, 1 TOTAL DOSES
     Dates: start: 20220709, end: 20220709
  5. SPRAVATO [Suspect]
     Active Substance: ESKETAMINE
     Dosage: 84 MG, 1 TOTAL DOSES
     Dates: start: 20220924, end: 20220924
  6. SPRAVATO [Suspect]
     Active Substance: ESKETAMINE
     Dosage: 56 MG, 1 TOTAL DOSES
     Dates: start: 20221105, end: 20221105
  7. SPRAVATO [Suspect]
     Active Substance: ESKETAMINE
     Dosage: 84 MG, 3 TOTAL DOSES
     Dates: start: 20221210, end: 20230211
  8. SPRAVATO [Suspect]
     Active Substance: ESKETAMINE
     Dosage: 56 MG,1 TOTAL DOSES
     Dates: start: 20230311, end: 20230311
  9. SPRAVATO [Suspect]
     Active Substance: ESKETAMINE
     Dosage: 28 MG,1 TOTAL DOSES
     Dates: start: 20230429, end: 20230429
  10. SPRAVATO [Suspect]
     Active Substance: ESKETAMINE
     Dosage: 56 MG,26 TOTAL DOSES
     Dates: start: 20231006, end: 20240727

REACTIONS (1)
  - Hospitalisation [Unknown]
